FAERS Safety Report 5486620-4 (Version None)
Quarter: 2007Q3

REPORT INFORMATION
  Report Type: 
  Country: None (occurrence: None)
  Receive Date: 20070925
  Receipt Date: 20070529
  Transmission Date: 20080115
  Serious: No
  Sender: FDA-Public Use
  Company Number: 2006US002912

PATIENT
  Age: 80 Year
  Sex: Female

DRUGS (8)
  1. VESICARE [Suspect]
     Indication: INCONTINENCE
     Dosage: 5 MG, ORAL
     Route: 048
     Dates: start: 20060904, end: 20070301
  2. LEVOTHYROXINE SODIUM [Concomitant]
  3. NEXIUM (ESOMEPRAZOLE MAGENSIUM) [Concomitant]
  4. ASPIRIN [Concomitant]
  5. MULTIVITAMINS (ERGOCALCIFEROL, FOLIC ACID, NICOTINAMIDE, PANTHENOL, TH [Concomitant]
  6. GLUCOSAMIN (GLUCOSAMINE SULFATE SODIUM CHLORIDE) [Concomitant]
  7. CALCIUM (CALCIUM) [Concomitant]
  8. ASCORBIC ACID [Concomitant]

REACTIONS (4)
  - DRY MOUTH [None]
  - OEDEMA [None]
  - POLLAKIURIA [None]
  - URINE OUTPUT INCREASED [None]
